FAERS Safety Report 11310152 (Version 1)
Quarter: 2015Q3

REPORT INFORMATION
  Report Type: Spontaneous
  Country: CA (occurrence: CA)
  Receive Date: 20150724
  Receipt Date: 20150724
  Transmission Date: 20151125
  Serious: Yes (Other)
  Sender: FDA-Public Use
  Company Number: CA-ELI_LILLY_AND_COMPANY-CA201507005726

PATIENT
  Sex: Female

DRUGS (1)
  1. HUMATROPE [Suspect]
     Active Substance: SOMATROPIN
     Indication: BLOOD GROWTH HORMONE
     Dosage: UNK UNK, UNKNOWN
     Route: 065
     Dates: start: 2007, end: 2012

REACTIONS (1)
  - Neoplasm recurrence [Recovered/Resolved]

NARRATIVE: CASE EVENT DATE: 2012
